FAERS Safety Report 4622289-6 (Version None)
Quarter: 2005Q1

REPORT INFORMATION
  Report Type: 
  Country: None (occurrence: None)
  Receive Date: 20050328
  Receipt Date: 20050318
  Transmission Date: 20050727
  Serious: Yes (Hospitalization)
  Sender: FDA-Public Use
  Company Number: 05-162

PATIENT
  Age: 65 Year
  Sex: Female

DRUGS (5)
  1. VERAPAMIL [Suspect]
     Indication: SINUS TACHYCARDIA
     Dosage: 240 MG, 1 IN 1 D, ORAL; 120 MG, 1 IN 1, ORAL
     Route: 048
     Dates: start: 20040428, end: 20040513
  2. VERAPAMIL [Suspect]
     Indication: SINUS TACHYCARDIA
     Dosage: 240 MG, 1 IN 1 D, ORAL; 120 MG, 1 IN 1, ORAL
     Route: 048
     Dates: start: 20040513, end: 20040525
  3. SIMVASTATIN [Concomitant]
  4. LORMETAZEPAM [Concomitant]
  5. SENNA LEAF [Concomitant]

REACTIONS (3)
  - ARRHYTHMIA [None]
  - DRUG INTERACTION [None]
  - HEPATIC FAILURE [None]
